FAERS Safety Report 20327006 (Version 1)
Quarter: 2022Q1

REPORT INFORMATION
  Report Type: Spontaneous
  Country: US (occurrence: US)
  Receive Date: 20220112
  Receipt Date: 20220112
  Transmission Date: 20220423
  Serious: Yes (Other)
  Sender: FDA-Public Use
  Company Number: US-BAUSCH-BL-2022-000406

PATIENT
  Age: 84 Year
  Sex: Male

DRUGS (2)
  1. RETISERT [Suspect]
     Active Substance: FLUOCINOLONE ACETONIDE
     Indication: Eye inflammation
     Route: 047
     Dates: start: 2003
  2. RETISERT [Suspect]
     Active Substance: FLUOCINOLONE ACETONIDE
     Route: 047
     Dates: start: 20200305

REACTIONS (4)
  - Blindness unilateral [Not Recovered/Not Resolved]
  - Device dislocation [Unknown]
  - Surgery [Unknown]
  - Visual impairment [Unknown]

NARRATIVE: CASE EVENT DATE: 20200224
